FAERS Safety Report 5943701-6 (Version None)
Quarter: 2008Q4

REPORT INFORMATION
  Report Type: 
  Country: None (occurrence: None)
  Receive Date: 20081106
  Receipt Date: 20081027
  Transmission Date: 20090506
  Serious: Yes (Other)
  Sender: FDA-Public Use
  Company Number: US-BAXTER-2008BH011540

PATIENT
  Age: 35 Year
  Sex: Male

DRUGS (3)
  1. PROMETHAZINE HCL [Suspect]
     Indication: NAUSEA
     Route: 030
     Dates: start: 20081009, end: 20081009
  2. PROMETHAZINE HCL [Suspect]
     Indication: HEADACHE
     Route: 030
     Dates: start: 20081009, end: 20081009
  3. PROMETHAZINE HCL [Suspect]
     Indication: VOMITING
     Route: 030
     Dates: start: 20081009, end: 20081009

REACTIONS (4)
  - INJECTION SITE ERYTHEMA [None]
  - INJECTION SITE EXTRAVASATION [None]
  - INJECTION SITE INDURATION [None]
  - PAIN [None]
